FAERS Safety Report 7536828-9 (Version None)
Quarter: 2011Q2

REPORT INFORMATION
  Report Type: 
  Country: None (occurrence: None)
  Receive Date: 20110609
  Receipt Date: 20110602
  Transmission Date: 20111010
  Serious: Yes (Other)
  Sender: FDA-Public Use
  Company Number: CA-ROCHE-780430

PATIENT
  Age: 24 Year
  Sex: Male

DRUGS (4)
  1. METHAMPHETAMINE HYDROCHLORIDE [Suspect]
     Route: 065
  2. OXYCONTIN [Suspect]
     Dosage: TABLET EXTENDED RELEASE
     Route: 065
  3. VALIUM [Suspect]
     Route: 065
  4. COCAINE [Suspect]
     Route: 065

REACTIONS (4)
  - HOMICIDE [None]
  - EUPHORIC MOOD [None]
  - HALLUCINATION, AUDITORY [None]
  - SUBSTANCE ABUSE [None]
